FAERS Safety Report 14655968 (Version 1)
Quarter: 2018Q1

REPORT INFORMATION
  Report Type: Spontaneous
  Country: US (occurrence: US)
  Receive Date: 20180319
  Receipt Date: 20180319
  Transmission Date: 20180509
  Serious: Yes (Other)
  Sender: FDA-Public Use
  Company Number: US-ASTELLAS-2018US012786

PATIENT
  Age: 6 Month
  Sex: Female

DRUGS (4)
  1. ALEMTUZUMAB [Concomitant]
     Active Substance: ALEMTUZUMAB
     Indication: STEM CELL TRANSPLANT
     Dosage: 0.3 MG/KG, (DAYS -6 TO 4)
     Route: 065
  2. TACROLIMUS. [Suspect]
     Active Substance: TACROLIMUS
     Indication: GRAFT VERSUS HOST DISEASE
     Dosage: UNK UNK, UNKNOWN FREQ.
     Route: 065
  3. FLUDARABINE [Concomitant]
     Active Substance: FLUDARABINE PHOSPHATE
     Indication: STEM CELL TRANSPLANT
     Dosage: 1 MG/KG, (ON DAYS 7 TO 3)
     Route: 065
  4. MELPHALAN. [Concomitant]
     Active Substance: MELPHALAN
     Indication: STEM CELL TRANSPLANT
     Dosage: 4.7 MG/KG, ON DAY 2
     Route: 065

REACTIONS (6)
  - Transplant failure [Unknown]
  - Neutropenia [Unknown]
  - Rotavirus infection [Unknown]
  - Upper respiratory tract infection [Unknown]
  - Clostridium difficile infection [Unknown]
  - Off label use [Unknown]
